FAERS Safety Report 8061346-1 (Version None)
Quarter: 2012Q1

REPORT INFORMATION
  Report Type: 
  Country: None (occurrence: None)
  Receive Date: 20120120
  Receipt Date: 20110922
  Transmission Date: 20120608
  Serious: No
  Sender: FDA-Public Use
  Company Number: US-ALLERGAN-1112621US

PATIENT
  Age: 48 Year
  Sex: Female

DRUGS (2)
  1. RESTASIS [Suspect]
     Indication: DRY EYE
     Dosage: 2 GTT
     Route: 047
     Dates: start: 20110725, end: 20110901
  2. THERA TEARS [Concomitant]

REACTIONS (2)
  - EYE IRRITATION [None]
  - DRY EYE [None]
